FAERS Safety Report 14469431 (Version 1)
Quarter: 2018Q1

REPORT INFORMATION
  Report Type: Other
  Country: US (occurrence: US)
  Receive Date: 20180131
  Receipt Date: 20180131
  Transmission Date: 20180509
  Serious: No
  Sender: FDA-Public Use
  Company Number: US-ACORDA-ACO_139953_2017

PATIENT
  Age: 48 Year
  Sex: Female

DRUGS (3)
  1. NEOMYCIN. [Suspect]
     Active Substance: NEOMYCIN
     Indication: SCRATCH
     Dosage: UNK
     Route: 065
     Dates: start: 201705
  2. TECFIDERA [Concomitant]
     Active Substance: DIMETHYL FUMARATE
     Indication: PRODUCT USED FOR UNKNOWN INDICATION
     Dosage: UNK
     Route: 065
  3. AMPYRA [Suspect]
     Active Substance: DALFAMPRIDINE
     Indication: MULTIPLE SCLEROSIS
     Dosage: 10 MG, BID
     Route: 048
     Dates: start: 2011

REACTIONS (4)
  - Drug dose omission [Unknown]
  - Asthenia [Unknown]
  - Dermatitis allergic [Recovered/Resolved]
  - Muscle spasticity [Not Recovered/Not Resolved]

NARRATIVE: CASE EVENT DATE: 201705
